FAERS Safety Report 10674239 (Version 3)
Quarter: 2015Q1

REPORT INFORMATION
  Report Type: Spontaneous
  Country: US (occurrence: US)
  Receive Date: 20141224
  Receipt Date: 20150304
  Transmission Date: 20150720
  Serious: Yes (Hospitalization, Other)
  Sender: FDA-Public Use
  Company Number: US-AMGEN-USASP2014100328

PATIENT
  Age: 82 Year
  Sex: Female
  Weight: 57.82 kg

DRUGS (13)
  1. CLARITIN [Concomitant]
     Active Substance: LORATADINE
  2. LASIX [Concomitant]
     Active Substance: FUROSEMIDE
  3. LOPRESSOR [Concomitant]
     Active Substance: METOPROLOL TARTRATE
  4. SYNTHROID [Concomitant]
     Active Substance: LEVOTHYROXINE SODIUM
  5. POTASSIUM CHLORIDE. [Concomitant]
     Active Substance: POTASSIUM CHLORIDE
  6. PROTONIX [Concomitant]
     Active Substance: PANTOPRAZOLE SODIUM
  7. PROLIA [Suspect]
     Active Substance: DENOSUMAB
     Indication: OSTEOPOROSIS POSTMENOPAUSAL
     Dosage: 60 MG, Q6MO
     Route: 058
     Dates: start: 20141112
  8. WARFARIN [Concomitant]
     Active Substance: WARFARIN
  9. DIOVAN [Concomitant]
     Active Substance: VALSARTAN
  10. PENTASA COMPACT [Concomitant]
  11. DEXAMETHASONE. [Concomitant]
     Active Substance: DEXAMETHASONE
  12. PEPCID                             /00305201/ [Concomitant]
     Active Substance: ALUMINUM HYDROXIDE\MAGNESIUM CARBONATE
  13. CARDIZEM [Concomitant]
     Active Substance: DILTIAZEM HYDROCHLORIDE

REACTIONS (7)
  - Dysphagia [Recovering/Resolving]
  - Oropharyngeal swelling [Recovering/Resolving]
  - Scab [Unknown]
  - Swollen tongue [Not Recovered/Not Resolved]
  - Nasal discomfort [Unknown]
  - Angioedema [Not Recovered/Not Resolved]
  - Drug hypersensitivity [Unknown]

NARRATIVE: CASE EVENT DATE: 2014
